FAERS Safety Report 5573532-0 (Version None)
Quarter: 2007Q4

REPORT INFORMATION
  Report Type: 
  Country: None (occurrence: None)
  Receive Date: 20071226
  Receipt Date: 20071218
  Transmission Date: 20080405
  Serious: Yes (Other)
  Sender: FDA-Public Use
  Company Number: JP-AVENTIS-200713268JP

PATIENT
  Age: 80 Year
  Sex: Male

DRUGS (4)
  1. LASIX [Suspect]
     Route: 051
  2. LASIX [Suspect]
     Route: 048
  3. GASTER [Concomitant]
  4. DEPAKENE                           /00228501/ [Concomitant]

REACTIONS (1)
  - PEMPHIGOID [None]
